FAERS Safety Report 25463185 (Version 2)
Quarter: 2025Q3

REPORT INFORMATION
  Report Type: Spontaneous
  Country: AE (occurrence: AE)
  Receive Date: 20250620
  Receipt Date: 20250814
  Transmission Date: 20251020
  Serious: Yes (Hospitalization, Other)
  Sender: NOVARTIS
  Company Number: AE-002147023-NVSC2025AE078858

PATIENT
  Age: 12 Month
  Sex: Female
  Weight: 2.89 kg

DRUGS (3)
  1. ZOLGENSMA [Suspect]
     Active Substance: ONASEMNOGENE ABEPARVOVEC-XIOI
     Indication: Spinal muscular atrophy
     Route: 042
     Dates: start: 20250109, end: 20250109
  2. RISDIPLAM [Concomitant]
     Active Substance: RISDIPLAM
     Indication: Spinal muscular atrophy
     Dosage: 0.2 MG/KG, QD
     Route: 065
     Dates: start: 20240927, end: 20250107
  3. NEXIUM [Concomitant]
     Active Substance: ESOMEPRAZOLE MAGNESIUM
     Indication: Product used for unknown indication
     Route: 065

REACTIONS (3)
  - Liver injury [Unknown]
  - Hepatic enzyme increased [Recovering/Resolving]
  - Pyrexia [Recovered/Resolved]
